FAERS Safety Report 8135685-X (Version None)
Quarter: 2012Q1

REPORT INFORMATION
  Report Type: 
  Country: None (occurrence: None)
  Receive Date: 20120103
  Receipt Date: 20111102
  Transmission Date: 20120608
  Serious: No
  Sender: FDA-Public Use
  Company Number: AE-2011-003013

PATIENT
  Age: 67 Year
  Sex: Female
  Weight: 83.9154 kg

DRUGS (8)
  1. TYLENOL ES (PARACETAMOL) [Concomitant]
  2. FISH OIL (FISH OIL) [Concomitant]
  3. PEGINTERFERON (PEGINTERFERON ALFA-2A) [Concomitant]
  4. VITAMIN D [Concomitant]
  5. INCIVEK [Suspect]
     Dosage: 2250 MG (750 MG, 3 IN 1 D), ORAL
     Route: 048
     Dates: start: 20111004
  6. COMPAZINE (COMPAZINE) [Concomitant]
  7. PROZAC [Concomitant]
  8. RIBAVIRIN [Concomitant]

REACTIONS (5)
  - FATIGUE [None]
  - VOMITING [None]
  - RASH [None]
  - INSOMNIA [None]
  - NAUSEA [None]
